FAERS Safety Report 16277356 (Version 4)
Quarter: 2019Q3

REPORT INFORMATION
  Report Type: Spontaneous
  Country: PL (occurrence: PL)
  Receive Date: 20190506
  Receipt Date: 20190809
  Transmission Date: 20191004
  Serious: Yes (Other)
  Sender: FDA-Public Use
  Company Number: PL-JNJFOC-20190504367

PATIENT
  Sex: Male
  Weight: 76.26 kg

DRUGS (1)
  1. RIVAROXABAN [Suspect]
     Active Substance: RIVAROXABAN
     Indication: ATRIAL FIBRILLATION
     Dosage: 20 MG
     Route: 048

REACTIONS (9)
  - Skin disorder [Unknown]
  - Asthenia [Unknown]
  - Contusion [Recovering/Resolving]
  - Ecchymosis [Recovered/Resolved]
  - Pruritus [Unknown]
  - Back pain [Unknown]
  - Weight decreased [Unknown]
  - Muscle atrophy [Unknown]
  - Red blood cell count decreased [Unknown]
